FAERS Safety Report 12495609 (Version 2)
Quarter: 2016Q2

REPORT INFORMATION
  Report Type: Spontaneous
  Country: ES (occurrence: ES)
  Receive Date: 20160624
  Receipt Date: 20160624
  Transmission Date: 20160815
  Serious: Yes (Life-Threatening, Hospitalization, Other)
  Sender: FDA-Public Use
  Company Number: ES-PFIZER INC-2016310904

PATIENT
  Age: 84 Year
  Sex: Male

DRUGS (7)
  1. PLETAL [Suspect]
     Active Substance: CILOSTAZOL
     Indication: INTERMITTENT CLAUDICATION
     Dosage: 100 MG, 2X/DAY(1-0-1)
     Route: 048
     Dates: start: 2016, end: 201606
  2. EUCREAS [Suspect]
     Active Substance: METFORMIN HYDROCHLORIDE\VILDAGLIPTIN
     Indication: TYPE 2 DIABETES MELLITUS
     Dosage: 1 TABLET OF 50 MG/850 MG 2X/DAY (1-0-1)
     Route: 048
     Dates: start: 2016, end: 201606
  3. STALEVO [Suspect]
     Active Substance: CARBIDOPA\ENTACAPONE\LEVODOPA
     Indication: DEMENTIA
     Dosage: 1 TABLET OF 150 MG/37.5 MG/200 MG (1-0-0)
     Route: 048
     Dates: start: 2016, end: 201606
  4. RAMIPRIL. [Suspect]
     Active Substance: RAMIPRIL
     Indication: HYPERTENSION
     Dosage: 10 MG, 1X/DAY (1-0-0)
     Route: 048
     Dates: start: 2016, end: 201606
  5. LYRICA [Suspect]
     Active Substance: PREGABALIN
     Dosage: 150 MG, 3X/DAY (1-1-1)
     Route: 048
     Dates: start: 2016, end: 201606
  6. NOVONORM [Suspect]
     Active Substance: REPAGLINIDE
     Indication: TYPE 2 DIABETES MELLITUS
     Dosage: 1 MG, 3X/DAY(1-1-1)
     Route: 048
     Dates: start: 2016, end: 201606
  7. ROLPRYNA [Suspect]
     Active Substance: ROPINIROLE HYDROCHLORIDE
     Indication: PARKINSON^S DISEASE
     Dosage: 8 MG, 1X/DAY (0-0-1)
     Route: 048
     Dates: start: 2016, end: 201606

REACTIONS (9)
  - Renal impairment [Unknown]
  - Abdominal pain upper [Unknown]
  - Procedural hypotension [Recovering/Resolving]
  - Anuria [Unknown]
  - Acute kidney injury [Unknown]
  - Dyspnoea [Unknown]
  - Atrial fibrillation [Recovering/Resolving]
  - Abdominal discomfort [Unknown]
  - Angina pectoris [Recovering/Resolving]

NARRATIVE: CASE EVENT DATE: 20160527
